FAERS Safety Report 6128167-8 (Version None)
Quarter: 2009Q1

REPORT INFORMATION
  Report Type: 
  Country: None (occurrence: None)
  Receive Date: 20090323
  Receipt Date: 20090310
  Transmission Date: 20090719
  Serious: Yes (Hospitalization)
  Sender: FDA-Public Use
  Company Number: FR-JNJFOC-20090305333

PATIENT
  Age: 87 Year
  Sex: Female

DRUGS (4)
  1. TOPALGIC [Suspect]
     Indication: PAIN IN EXTREMITY
     Route: 048
  2. CELECTOL [Suspect]
     Indication: HYPERTENSION
     Route: 048
  3. HAVLANE [Suspect]
     Indication: DRUG USE FOR UNKNOWN INDICATION
     Route: 065
  4. HYZAAR [Suspect]
     Indication: DRUG USE FOR UNKNOWN INDICATION
     Route: 065

REACTIONS (2)
  - FALL [None]
  - JOINT SPRAIN [None]
